FAERS Safety Report 7555910-3 (Version None)
Quarter: 2011Q2

REPORT INFORMATION
  Report Type: 
  Country: None (occurrence: None)
  Receive Date: 20110618
  Receipt Date: 20110128
  Transmission Date: 20111010
  Serious: Yes (Other)
  Sender: FDA-Public Use
  Company Number: US-BAYER-201021823NA

PATIENT
  Age: 28 Year
  Sex: Female
  Weight: 54.545 kg

DRUGS (8)
  1. NSAID'S [Concomitant]
  2. PREVACID [Concomitant]
     Indication: ABDOMINAL DISCOMFORT
     Route: 048
     Dates: start: 20061214
  3. VITAMIN TAB [Concomitant]
  4. ANTIHYPERTENSIVES [Concomitant]
  5. ONDANSETRON [Concomitant]
     Indication: MIGRAINE
     Dosage: 4MG Q4-6HR PRN
     Route: 048
     Dates: start: 20070101
  6. ONDANSETRON [Concomitant]
     Indication: NAUSEA
  7. ANTIBIOTICS [Concomitant]
  8. YASMIN [Suspect]
     Indication: CONTRACEPTION
     Route: 048
     Dates: start: 20061001, end: 20080701

REACTIONS (2)
  - CHOLECYSTITIS CHRONIC [None]
  - MENTAL DISORDER [None]
